FAERS Safety Report 23605212 (Version 1)
Quarter: 2024Q1

REPORT INFORMATION
  Report Type: Spontaneous
  Country: US (occurrence: US)
  Receive Date: 20240307
  Receipt Date: 20240307
  Transmission Date: 20240410
  Serious: No
  Sender: FDA-Public Use
  Company Number: US-TEVA-VS-3142310

PATIENT
  Sex: Female

DRUGS (1)
  1. CLONAZEPAM [Suspect]
     Active Substance: CLONAZEPAM
     Dosage: TABLETS - ORALLY DISINTEGRATING
     Route: 048

REACTIONS (3)
  - Nausea [Unknown]
  - Drug ineffective [Unknown]
  - Dysgeusia [Unknown]
